FAERS Safety Report 5987615-4 (Version None)
Quarter: 2008Q4

REPORT INFORMATION
  Report Type: 
  Country: None (occurrence: None)
  Receive Date: 20081128
  Receipt Date: 20071121
  Transmission Date: 20090506
  Serious: Yes (Other)
  Sender: FDA-Public Use
  Company Number: US020915

PATIENT
  Age: 67 Year
  Sex: Male
  Weight: 76.2043 kg

DRUGS (12)
  1. TRISENOX [Suspect]
     Indication: ACUTE PROMYELOCYTIC LEUKAEMIA
     Dosage: 10 MG/10 ML; 5 DAYS PER WEEK INTRAVENOUS DRIP
     Route: 041
     Dates: start: 20070601, end: 20070727
  2. TRISENOX [Suspect]
     Indication: ACUTE PROMYELOCYTIC LEUKAEMIA
     Dosage: 10 MG/10ML; 5 DAYS PER WEEK INTRAVENOUS DRIP
     Route: 041
     Dates: start: 20070806, end: 20070904
  3. TRISENOX [Suspect]
     Indication: ACUTE PROMYELOCYTIC LEUKAEMIA
     Dosage: 10 MG/10ML; 5 DAYS PER WEEK INTRAVENOUS DRIP
     Route: 041
     Dates: start: 20070924
  4. ZOCOR [Concomitant]
  5. FLOMAX [Concomitant]
  6. SENOKOT [Concomitant]
  7. LEVAQUIN [Concomitant]
  8. MULTI-VITAMINS [Concomitant]
  9. PREDNISONE TAB [Concomitant]
  10. CLONAZEPAM [Concomitant]
  11. TERAZOSIN HCL [Concomitant]
  12. VESANOID [Concomitant]

REACTIONS (1)
  - NEUTROPENIA [None]
